FAERS Safety Report 8044276-0 (Version None)
Quarter: 2012Q1

REPORT INFORMATION
  Report Type: 
  Country: None (occurrence: None)
  Receive Date: 20120113
  Receipt Date: 20120106
  Transmission Date: 20120608
  Serious: Yes (Hospitalization, Other)
  Sender: FDA-Public Use
  Company Number: US-BAYER-2011-073273

PATIENT
  Age: 24 Year
  Sex: Female

DRUGS (5)
  1. YAZ [Suspect]
     Dosage: UNK
     Dates: start: 20060101, end: 20090101
  2. CELEXA [Concomitant]
     Dosage: 20 MG, QD
     Route: 048
  3. OXYCODONE HCL [Concomitant]
     Dosage: UNK UNK, PRN
     Route: 048
  4. YASMIN [Suspect]
     Dosage: UNK
     Dates: start: 20060101, end: 20090101
  5. BENTYL [Concomitant]
     Dosage: 20 MG, PRN
     Route: 048

REACTIONS (3)
  - PAIN [None]
  - GALLBLADDER DISORDER [None]
  - CHOLECYSTITIS CHRONIC [None]
